FAERS Safety Report 7993976-7 (Version None)
Quarter: 2011Q4

REPORT INFORMATION
  Report Type: 
  Country: None (occurrence: None)
  Receive Date: 20111215
  Receipt Date: 20111213
  Transmission Date: 20120403
  Serious: Yes (Hospitalization, Disabling)
  Sender: FDA-Public Use
  Company Number: PD 156

PATIENT
  Age: 46 Year
  Sex: Female

DRUGS (2)
  1. ACETYL-SALICYLIC ACID AND PARACETAMOL [Concomitant]
  2. CHLORPHENIRAMINE MALEATE [Suspect]

REACTIONS (7)
  - TOXIC EPIDERMAL NECROLYSIS [None]
  - VISUAL ACUITY REDUCED [None]
  - GASTROINTESTINAL HAEMORRHAGE [None]
  - PLEURAL EFFUSION [None]
  - CORNEAL OPACITY [None]
  - PYREXIA [None]
  - OESOPHAGEAL CANDIDIASIS [None]
